FAERS Safety Report 14890061 (Version 1)
Quarter: 2018Q2

REPORT INFORMATION
  Report Type: Spontaneous
  Country: FR (occurrence: FR)
  Receive Date: 20180514
  Receipt Date: 20180514
  Transmission Date: 20180711
  Serious: Yes (Hospitalization, Other)
  Sender: FDA-Public Use
  Company Number: FR-MERCK KGAA-2047693

PATIENT
  Age: 52 Year
  Sex: Female

DRUGS (1)
  1. NOVOTHYROX [Suspect]
     Active Substance: LEVOTHYROXINE SODIUM
     Indication: PRODUCT USED FOR UNKNOWN INDICATION
     Dates: start: 2017

REACTIONS (11)
  - Abdominal pain upper [None]
  - Libido decreased [None]
  - Drug resistance [None]
  - Vomiting [None]
  - Blood thyroid stimulating hormone decreased [None]
  - Gastrooesophageal reflux disease [None]
  - Asthenia [None]
  - Psychiatric symptom [None]
  - Anti-thyroid antibody positive [None]
  - Decreased interest [None]
  - Social avoidant behaviour [None]

NARRATIVE: CASE EVENT DATE: 2017
